FAERS Safety Report 7034041-5 (Version None)
Quarter: 2010Q4

REPORT INFORMATION
  Report Type: 
  Country: None (occurrence: None)
  Receive Date: 20101006
  Receipt Date: 20100922
  Transmission Date: 20110411
  Serious: Yes (Hospitalization)
  Sender: FDA-Public Use
  Company Number: 018176

PATIENT
  Sex: Female

DRUGS (11)
  1. CERTOLIZUMAB PEGOL (CERTOLIZUMAB PEGOL) [Suspect]
     Indication: RHEUMATOID ARTHRITIS
     Dosage: ((200 MG 1X/2 WEEKS SUBCUTANEOUS)
     Route: 058
     Dates: start: 20100223, end: 20100812
  2. CERTOLIZUMAB PEGOL (CERTOLIZUMAB PEGOL) [Suspect]
     Indication: RHEUMATOID ARTHRITIS
     Dosage: ((200 MG 1X/2 WEEKS SUBCUTANEOUS)
     Route: 058
     Dates: start: 20090811
  3. CERTOLIZUMAB PEGOL (CERTOLIZUMAB PEGOL) [Suspect]
     Indication: RHEUMATOID ARTHRITIS
     Dosage: ((200 MG 1X/2 WEEKS SUBCUTANEOUS)
     Route: 058
     Dates: start: 20100921
  4. RHEUMATREX [Suspect]
     Indication: RHEUMATOID ARTHRITIS
     Dosage: (8 MG 1X/WEEK ORAL)
     Route: 048
     Dates: start: 20071001, end: 20100820
  5. RHEUMATREX [Suspect]
     Indication: RHEUMATOID ARTHRITIS
     Dosage: (8 MG 1X/WEEK ORAL)
     Route: 048
     Dates: start: 20100922
  6. REBAMIPIDE [Concomitant]
  7. TOCOPHEROL CONCENTRATE CAP [Concomitant]
  8. FOLIC ACID [Concomitant]
  9. CELECOXIB [Concomitant]
  10. AMLODIPINE BESYLATE [Concomitant]
  11. IRBESARTAN [Concomitant]

REACTIONS (4)
  - CHRONIC SINUSITIS [None]
  - NASOPHARYNGITIS [None]
  - PYOGENIC GRANULOMA [None]
  - SPUTUM DISCOLOURED [None]
